FAERS Safety Report 10916428 (Version 2)
Quarter: 2015Q1

REPORT INFORMATION
  Report Type: Spontaneous
  Country: LV (occurrence: LV)
  Receive Date: 20150316
  Receipt Date: 20150317
  Transmission Date: 20150721
  Serious: Yes (Life-Threatening)
  Sender: FDA-Public Use
  Company Number: LV-B.I. PHARMACEUTICALS,INC./RIDGEFIELD-2015-BI-12980LV

PATIENT
  Sex: Female

DRUGS (1)
  1. PRADAXA [Suspect]
     Active Substance: DABIGATRAN ETEXILATE MESYLATE
     Indication: THROMBOSIS PROPHYLAXIS
     Dosage: 220 MG
     Route: 048

REACTIONS (3)
  - Hypovolaemia [Recovered/Resolved]
  - Acute kidney injury [Recovered/Resolved]
  - Product use issue [Recovered/Resolved]
